FAERS Safety Report 17301192 (Version 1)
Quarter: 2020Q1

REPORT INFORMATION
  Report Type: Spontaneous
  Country: US (occurrence: US)
  Receive Date: 20200104
  Receipt Date: 20200104
  Transmission Date: 20200409
  Serious: No
  Sender: FDA-Public Use
  Company Number: None

PATIENT
  Age: 77 Year
  Sex: Female

DRUGS (1)
  1. DOCETAXEL INJ 80MG/4ML [Suspect]
     Active Substance: DOCETAXEL
     Route: 042
     Dates: start: 201909

REACTIONS (1)
  - Electrocardiogram abnormal [None]

NARRATIVE: CASE EVENT DATE: 20200104
